FAERS Safety Report 4963808-X (Version None)
Quarter: 2006Q1

REPORT INFORMATION
  Report Type: 
  Country: None (occurrence: None)
  Receive Date: 20060330
  Receipt Date: 20060309
  Transmission Date: 20060701
  Serious: Yes (Other)
  Sender: FDA-Public Use
  Company Number: DE200603002749

PATIENT
  Age: 85 Year
  Sex: Female
  Weight: 65 kg

DRUGS (3)
  1. DULOXETINE HYDROCHLORIDE (DULOXETINE HYDROCHLORIDE) CAPSULE [Suspect]
     Indication: STRESS INCONTINENCE
     Dosage: 40 MG, DAILY (1/D), ORAL
     Route: 048
     Dates: start: 20060101, end: 20060307
  2. MOLSIDOMINE - SLOW RELEASE ^HEUMANN^ (MOLSIDOMINE) [Concomitant]
  3. BISOPROLOL FUMARATE [Concomitant]

REACTIONS (2)
  - CONFUSIONAL STATE [None]
  - PHOBIA [None]
